FAERS Safety Report 10679524 (Version 1)
Quarter: 2014Q4

REPORT INFORMATION
  Report Type: Spontaneous
  Country: US (occurrence: US)
  Receive Date: 20141229
  Receipt Date: 20141229
  Transmission Date: 20150529
  Serious: No
  Sender: FDA-Public Use
  Company Number: US-ABBVIE-14P-163-1243090-00

PATIENT
  Age: 53 Year
  Sex: Female
  Weight: 59.93 kg

DRUGS (1)
  1. LUPRON DEPOT [Suspect]
     Active Substance: LEUPROLIDE ACETATE
     Indication: PRODUCT USED FOR UNKNOWN INDICATION

REACTIONS (8)
  - Hot flush [Not Recovered/Not Resolved]
  - Irritability [Recovered/Resolved]
  - Seborrhoea [Not Recovered/Not Resolved]
  - Postmenopausal haemorrhage [Recovered/Resolved]
  - Seborrhoea [Recovered/Resolved]
  - Accidental exposure to product [Not Recovered/Not Resolved]
  - Hot flush [Recovered/Resolved]
  - Irritability [Not Recovered/Not Resolved]

NARRATIVE: CASE EVENT DATE: 201308
